FAERS Safety Report 7349086-5 (Version None)
Quarter: 2011Q1

REPORT INFORMATION
  Report Type: 
  Country: None (occurrence: None)
  Receive Date: 20110314
  Receipt Date: 20110304
  Transmission Date: 20110831
  Serious: Yes (Other)
  Sender: FDA-Public Use
  Company Number: JP-ASTELLAS-2011JP001333

PATIENT
  Age: 80 Year
  Sex: Female

DRUGS (10)
  1. ASPIRIN [Concomitant]
     Dosage: 100 MG, UNKNOWN/D
     Route: 048
  2. PAXIL [Suspect]
     Dosage: 20 MG, UNKNOWN/D
     Route: 048
  3. GOODMIN [Suspect]
     Dosage: 0.25 MG, UNKNOWN/D
     Route: 048
  4. VESICARE [Suspect]
     Dosage: 5 MG, UNKNOWN/D
     Route: 048
     Dates: start: 20110221
  5. ALMARL [Concomitant]
     Dosage: 20 MG, UNKNOWN/D
     Route: 048
  6. SENNARIDE [Concomitant]
     Dosage: 24 MG, UNKNOWN/D
     Route: 048
  7. SODIUM CHLORIDE [Concomitant]
     Dosage: 3.6 MG, UNKNOWN/D
     Route: 065
     Dates: start: 20110221
  8. VESICARE [Suspect]
     Indication: HYPERTONIC BLADDER
     Dosage: 10 MG, UNKNOWN/D
     Route: 048
     Dates: start: 20110125, end: 20110220
  9. VESICARE [Suspect]
     Dosage: 5 MG, UNKNOWN/D
     Route: 048
     Dates: start: 20110111
  10. LANDSEN [Suspect]
     Dosage: 1 MG, UNKNOWN/D
     Route: 048
     Dates: start: 20110221

REACTIONS (1)
  - DELIRIUM [None]
